FAERS Safety Report 20229844 (Version 1)
Quarter: 2021Q4

REPORT INFORMATION
  Report Type: Spontaneous
  Country: US (occurrence: US)
  Receive Date: 20211226
  Receipt Date: 20211226
  Transmission Date: 20220303
  Serious: No
  Sender: FDA-Public Use
  Company Number: US-ABBVIE-21K-163-4101743-00

PATIENT
  Age: 41 Year
  Sex: Male
  Weight: 88.984 kg

DRUGS (2)
  1. SKYRIZI [Suspect]
     Active Substance: RISANKIZUMAB-RZAA
     Indication: Psoriasis
     Route: 058
     Dates: start: 202008
  2. COVID-19 VACCINE [Concomitant]
     Indication: COVID-19 immunisation
     Dosage: JOHNSON + JOHNSON
     Route: 030
     Dates: start: 20210320, end: 20210320

REACTIONS (5)
  - Pernicious anaemia [Not Recovered/Not Resolved]
  - Vitamin B12 decreased [Not Recovered/Not Resolved]
  - Vitamin B complex deficiency [Not Recovered/Not Resolved]
  - Anxiety [Not Recovered/Not Resolved]
  - Parietal cell antibody positive [Not Recovered/Not Resolved]

NARRATIVE: CASE EVENT DATE: 20210401
